FAERS Safety Report 8168553-8 (Version None)
Quarter: 2012Q1

REPORT INFORMATION
  Report Type: 
  Country: None (occurrence: None)
  Receive Date: 20120227
  Receipt Date: 20120227
  Transmission Date: 20120608
  Serious: Yes (Other)
  Sender: FDA-Public Use
  Company Number: None

PATIENT
  Sex: Female
  Weight: 88.45 kg

DRUGS (1)
  1. ZYRTEC [Suspect]
     Indication: SEASONAL ALLERGY
     Dosage: 10MG
     Route: 048
     Dates: start: 19980101, end: 20120223

REACTIONS (3)
  - WITHDRAWAL SYNDROME [None]
  - DRUG DEPENDENCE [None]
  - PRURITUS GENERALISED [None]
